FAERS Safety Report 7038556-5 (Version None)
Quarter: 2010Q4

REPORT INFORMATION
  Report Type: 
  Country: None (occurrence: None)
  Receive Date: 20101011
  Receipt Date: 20100706
  Transmission Date: 20110411
  Serious: Yes (Other)
  Sender: FDA-Public Use
  Company Number: US-PFIZER INC-2009265299

PATIENT
  Sex: Female
  Weight: 82.5 kg

DRUGS (5)
  1. NEURONTIN [Suspect]
     Indication: TRIGEMINAL NEURALGIA
     Dosage: 100 MG, UNK
     Dates: start: 20090422
  2. NEURONTIN [Suspect]
     Dosage: 300 MG, UNK
  3. NEURONTIN [Suspect]
     Dosage: 600 MG, UNK
  4. NEURONTIN [Suspect]
     Dosage: 800 MG, DAILY
  5. TYLENOL [Concomitant]
     Dosage: UNK

REACTIONS (6)
  - ASTHMA [None]
  - DRUG INTOLERANCE [None]
  - PAIN [None]
  - PALPITATIONS [None]
  - TRIGEMINAL NEURALGIA [None]
  - VISUAL IMPAIRMENT [None]
